FAERS Safety Report 10881506 (Version 2)
Quarter: 2015Q2

REPORT INFORMATION
  Report Type: Spontaneous
  Country: US (occurrence: US)
  Receive Date: 20150303
  Receipt Date: 20150420
  Transmission Date: 20150821
  Serious: No
  Sender: FDA-Public Use
  Company Number: US-PFIZER INC-2015057212

PATIENT
  Age: 64 Year
  Sex: Male
  Weight: 67 kg

DRUGS (7)
  1. ZOCOR [Concomitant]
     Active Substance: SIMVASTATIN
     Dosage: 20 MG, UNK (AT BEDTIME)
     Route: 048
  2. LIALDA [Concomitant]
     Active Substance: MESALAMINE
     Dosage: 1.2 G, 2X/DAY
     Route: 048
  3. FERROUS SULFATE [Concomitant]
     Active Substance: FERROUS SULFATE\FERROUS SULFATE, DRIED
     Dosage: 325 MG, 3X/DAY (65MG ELEMENTAL IRON)
     Route: 048
  4. METFORMIN [Concomitant]
     Active Substance: METFORMIN HYDROCHLORIDE
     Dosage: 1000 MG, 2X/DAY
     Route: 048
  5. BOSULIF [Suspect]
     Active Substance: BOSUTINIB MONOHYDRATE
     Dosage: 500 MG, 1X/DAY
     Route: 048
     Dates: start: 20150408
  6. BOSULIF [Suspect]
     Active Substance: BOSUTINIB MONOHYDRATE
     Indication: CHRONIC MYELOID LEUKAEMIA
     Dosage: UNK
     Dates: start: 20141204
  7. PROTONIX [Concomitant]
     Active Substance: PANTOPRAZOLE SODIUM
     Dosage: 40 MG, 1X/DAY
     Route: 048

REACTIONS (2)
  - Weight increased [Unknown]
  - Nausea [Unknown]
